FAERS Safety Report 24355419 (Version 1)
Quarter: 2024Q3

REPORT INFORMATION
  Report Type: Spontaneous
  Country: GB (occurrence: GB)
  Receive Date: 20240924
  Receipt Date: 20240924
  Transmission Date: 20241016
  Serious: Yes (Disabling, Other)
  Sender: ACCORD
  Company Number: None

PATIENT
  Age: 28 Year
  Sex: Female
  Weight: 58 kg

DRUGS (5)
  1. METHOTREXATE [Suspect]
     Active Substance: METHOTREXATE
     Indication: Urticarial vasculitis
     Dosage: INJECT THE CONTENT OF ONE PRE-FILLED PEN BY SUBCUTANEOUS INJECTION ONCE A WEEK.
     Dates: start: 20220922, end: 20240501
  2. ONDANSETRON [Concomitant]
     Active Substance: ONDANSETRON
  3. FOLIC ACID [Concomitant]
     Active Substance: FOLIC ACID
  4. CHLORHEXIDINE [Concomitant]
     Active Substance: CHLORHEXIDINE
  5. BETAMETHASONE [Concomitant]
     Active Substance: BETAMETHASONE

REACTIONS (2)
  - Mucosal inflammation [Not Recovered/Not Resolved]
  - Agranulocytosis [Not Recovered/Not Resolved]

NARRATIVE: CASE EVENT DATE: 20240701
